FAERS Safety Report 14166069 (Version 3)
Quarter: 2018Q4

REPORT INFORMATION
  Report Type: Spontaneous
  Country: US (occurrence: US)
  Receive Date: 20171107
  Receipt Date: 20181102
  Transmission Date: 20190204
  Serious: Yes (Other)
  Sender: FDA-Public Use
  Company Number: US-PFIZER INC-2017471581

PATIENT
  Age: 73 Year
  Sex: Female
  Weight: 151.6 kg

DRUGS (16)
  1. IBRANCE [Suspect]
     Active Substance: PALBOCICLIB
     Dosage: 100 MG, CYCLIC (21 DAYS ON AND OFF 7 DAYS)
     Dates: start: 201705
  2. CLOTRIMAZOLE. [Concomitant]
     Active Substance: CLOTRIMAZOLE
     Dosage: 10 MG, 5 TIMES PER DAY
  3. WARFARIN [Concomitant]
     Active Substance: WARFARIN
     Dosage: UNK, 1X/DAY, (3-4 TABLET)
     Route: 048
  4. ATIVAN [Concomitant]
     Active Substance: LORAZEPAM
     Dosage: 1 MG, 3X/DAY
     Route: 048
  5. IBRANCE [Suspect]
     Active Substance: PALBOCICLIB
     Dosage: 100 MG, UNK
  6. LETROZOLE. [Suspect]
     Active Substance: LETROZOLE
     Indication: BREAST CANCER METASTATIC
     Dosage: 2.5 MG, CYCLIC (EVERYDAY)
     Route: 048
     Dates: start: 201705
  7. TYLENOL [Concomitant]
     Active Substance: ACETAMINOPHEN
     Dosage: 325 MG, AS NEEDED, (PRN)
     Route: 048
  8. WARFARIN [Concomitant]
     Active Substance: WARFARIN
     Dosage: 3 MG, DAILY
     Route: 048
     Dates: start: 201705
  9. VENTOLIN [Concomitant]
     Active Substance: ALBUTEROL SULFATE
     Dosage: 180 UG, AS NEEDED, (90 MCG/ACTUATLON, HFA AEROSOL INHALER 2 PUFF INHALATION PRN)
     Route: 055
  10. WARFARIN [Concomitant]
     Active Substance: WARFARIN
     Dosage: 2.5 MG, DAILY
  11. ZOFRAN [Concomitant]
     Active Substance: ONDANSETRON HYDROCHLORIDE
     Indication: NAUSEA
     Dosage: 8 MG, AS NEEDED, (EVERY 8 HOURS)
     Route: 048
  12. ATIVAN [Concomitant]
     Active Substance: LORAZEPAM
     Dosage: 0.5 MG, DAILY
  13. IBRANCE [Suspect]
     Active Substance: PALBOCICLIB
     Indication: BREAST CANCER METASTATIC
     Dosage: 125 MG, CYCLIC (ONCE DAILY FOR 21 DAYS AND THEN OFF 7 DAYS)
     Route: 048
     Dates: start: 20170525
  14. XGEVA [Concomitant]
     Active Substance: DENOSUMAB
     Indication: BONE CANCER METASTATIC
     Dosage: UNK
     Dates: start: 20170522
  15. PROCHLORPERAZINE. [Concomitant]
     Active Substance: PROCHLORPERAZINE
     Indication: NAUSEA
     Dosage: 10 MG, AS NEEDED, (EVERY 6 TO 8 HOURS)
     Route: 048
  16. PROCHLORPERAZINE. [Concomitant]
     Active Substance: PROCHLORPERAZINE
     Indication: VOMITING

REACTIONS (10)
  - Diarrhoea [Recovering/Resolving]
  - Weight decreased [Unknown]
  - Alopecia [Not Recovered/Not Resolved]
  - Dysphagia [Unknown]
  - Pancytopenia [Recovering/Resolving]
  - Tachycardia [Unknown]
  - Extra dose administered [Unknown]
  - Nausea [Unknown]
  - Anxiety [Unknown]
  - Onychomadesis [Not Recovered/Not Resolved]
